FAERS Safety Report 11656739 (Version 2)
Quarter: 2015Q4

REPORT INFORMATION
  Report Type: Spontaneous
  Country: FR (occurrence: FR)
  Receive Date: 20151023
  Receipt Date: 20151026
  Transmission Date: 20160304
  Serious: Yes (Hospitalization)
  Sender: FDA-Public Use
  Company Number: FR-FRESENIUS KABI-FK201505226

PATIENT
  Age: 58 Year
  Sex: Female

DRUGS (9)
  1. PREDNISOLONE. [Concomitant]
     Active Substance: PREDNISOLONE
  2. IMOVANE [Concomitant]
     Active Substance: ZOPICLONE
  3. TERCIAN [Concomitant]
     Active Substance: CYAMEMAZINE
  4. NOZINAN [Concomitant]
     Active Substance: LEVOMEPROMAZINE
  5. PACLITAXEL 6MG/ML CONCENTRATE FOR SOLUTION FOR INFUSION [Suspect]
     Active Substance: PACLITAXEL
     Indication: INVASIVE LOBULAR BREAST CARCINOMA
     Route: 042
     Dates: start: 20150708, end: 20150812
  6. AVASTIN [Suspect]
     Active Substance: BEVACIZUMAB
     Indication: INVASIVE LOBULAR BREAST CARCINOMA
     Route: 042
     Dates: start: 20150708, end: 20150722
  7. ABILIFY [Concomitant]
     Active Substance: ARIPIPRAZOLE
  8. CYMBALTA [Concomitant]
     Active Substance: DULOXETINE HYDROCHLORIDE
  9. PRIMPERAN [Concomitant]
     Active Substance: METOCLOPRAMIDE HYDROCHLORIDE

REACTIONS (2)
  - Deep vein thrombosis [Recovering/Resolving]
  - Thrombosis in device [Recovering/Resolving]

NARRATIVE: CASE EVENT DATE: 20150805
